FAERS Safety Report 13275586 (Version 1)
Quarter: 2017Q1

REPORT INFORMATION
  Report Type: Spontaneous
  Country: US (occurrence: US)
  Receive Date: 20170228
  Receipt Date: 20170228
  Transmission Date: 20170428
  Serious: No
  Sender: FDA-Public Use
  Company Number: US-TEVA-735827USA

PATIENT
  Age: 37 Year
  Sex: Female
  Weight: 68.1 kg

DRUGS (4)
  1. QVAR [Suspect]
     Active Substance: BECLOMETHASONE DIPROPIONATE
     Indication: EMPHYSEMA
     Dates: start: 20161103
  2. VENTOLIN [Concomitant]
     Active Substance: ALBUTEROL SULFATE
  3. LYRICA [Concomitant]
     Active Substance: PREGABALIN
  4. SPIRIVA [Concomitant]
     Active Substance: TIOTROPIUM BROMIDE MONOHYDRATE

REACTIONS (1)
  - Breath alcohol test [Not Recovered/Not Resolved]

NARRATIVE: CASE EVENT DATE: 20161103
